FAERS Safety Report 6293691-4 (Version None)
Quarter: 2009Q3

REPORT INFORMATION
  Report Type: 
  Country: None (occurrence: None)
  Receive Date: 20090729
  Receipt Date: 20090715
  Transmission Date: 20100115
  Serious: Yes (Hospitalization)
  Sender: FDA-Public Use
  Company Number: 001328

PATIENT
  Sex: Female

DRUGS (7)
  1. VIMPAT [Suspect]
     Dosage: (ORAL), (400 MG ORAL)
     Route: 048
     Dates: start: 20081113, end: 20081116
  2. VIMPAT [Suspect]
     Dosage: (ORAL), (400 MG ORAL)
     Route: 048
     Dates: start: 20081117, end: 20081123
  3. VIMPAT [Suspect]
     Dosage: (ORAL), (400 MG ORAL)
     Route: 048
     Dates: start: 20081124, end: 20081127
  4. VIMPAT [Suspect]
     Dosage: (ORAL), (400 MG ORAL)
     Route: 048
     Dates: start: 20081128
  5. TOPIRAMATE [Concomitant]
  6. VALPROATE SODIUM [Concomitant]
  7. PANTOPRAZOLE SODIUM [Concomitant]

REACTIONS (2)
  - CONVULSION [None]
  - DRUG INTERACTION [None]
